FAERS Safety Report 9192098 (Version 1)
Quarter: 2013Q1

REPORT INFORMATION
  Report Type: Spontaneous
  Country: DE (occurrence: None)
  Receive Date: 20130325
  Receipt Date: 20130325
  Transmission Date: 20140127
  Serious: Yes (Congenital Anomaly)
  Sender: FDA-Public Use
  Company Number: IPC201303-000105

PATIENT
  Sex: Female

DRUGS (5)
  1. METFORMIN HYDROCHLORIDE [Suspect]
  2. VENLAFAXINE (VENLAFAXINE) (VENLAFAXINE) [Suspect]
  3. MELPERONE (MELPERONE) [Suspect]
     Dosage: (2 X 850 MG/DAY
     Route: 064
  4. MELPERONE (MELPERONE) [Suspect]
     Dosage: (2 X 850 MG/DAY
     Route: 064
  5. MELPERONE (MELPERONE) [Suspect]
     Dosage: (2 X 850 MG/DAY
     Route: 064

REACTIONS (9)
  - Premature baby [None]
  - Fallot^s tetralogy [None]
  - Congenital uterine anomaly [None]
  - Anal atresia [None]
  - Persistent cloaca [None]
  - Spine malformation [None]
  - Atrial septal defect [None]
  - Aortic disorder [None]
  - Foetal exposure during pregnancy [None]
